FAERS Safety Report 9177629 (Version 2)
Quarter: 2012Q4

REPORT INFORMATION
  Report Type: Report from Study
  Country: US (occurrence: US)
  Receive Date: 20121003
  Receipt Date: 20121015
  Transmission Date: 20130627
  Serious: Yes (Other)
  Sender: FDA-Public Use
  Company Number: US-RB-031968-11

PATIENT
  Sex: Female

DRUGS (3)
  1. SUBOXONE FILM [Suspect]
     Indication: PRODUCT USED FOR UNKNOWN INDICATION
     Dosage: 2/day 8 mg
     Route: 065
     Dates: start: 2010
  2. SUBUTEX [Suspect]
     Indication: PRODUCT USED FOR UNKNOWN INDICATION
     Dosage: 2/Day 8mg
     Route: 065
  3. SUBOXONE UNSPECIFIED [Suspect]
     Indication: PRODUCT USED FOR UNKNOWN INDICATION
     Dosage: Dose details not provided
     Route: 065

REACTIONS (3)
  - Stillbirth [Recovered/Resolved]
  - Amniotic cavity infection [Recovered/Resolved]
  - Exposure during pregnancy [Recovered/Resolved]
